FAERS Safety Report 21035037 (Version 2)
Quarter: 2022Q3

REPORT INFORMATION
  Report Type: Report from Study
  Country: US (occurrence: US)
  Receive Date: 20220701
  Receipt Date: 20220713
  Transmission Date: 20221027
  Serious: Yes (Hospitalization, Other)
  Sender: FDA-Public Use
  Company Number: US-009507513-2205USA000955

PATIENT
  Sex: Male

DRUGS (25)
  1. BELZUTIFAN [Suspect]
     Active Substance: BELZUTIFAN
     Indication: Renal cancer
     Dosage: 3 TABLET (120 MG) DAILY
     Route: 048
     Dates: start: 20220418, end: 20220429
  2. BELZUTIFAN [Suspect]
     Active Substance: BELZUTIFAN
     Dosage: 3 TABLET (120 MG) DAILY
     Route: 048
     Dates: start: 20220503
  3. BELZUTIFAN [Suspect]
     Active Substance: BELZUTIFAN
     Dosage: 3 TABLET (120 MG) DAILY
     Route: 048
     Dates: start: 20220601
  4. BELZUTIFAN [Suspect]
     Active Substance: BELZUTIFAN
     Dosage: 3 TABLET (120 MG) DAILY
     Route: 048
     Dates: start: 2022
  5. TAMSULOSIN [Concomitant]
     Active Substance: TAMSULOSIN
  6. CARAFATE [Concomitant]
     Active Substance: SUCRALFATE
  7. DEXAMETHASONE [Concomitant]
     Active Substance: DEXAMETHASONE
  8. CITALOPRAM [Concomitant]
     Active Substance: CITALOPRAM HYDROBROMIDE
  9. CYCLOBENZAPRINE [Concomitant]
     Active Substance: CYCLOBENZAPRINE
  10. PROCHLORPERAZINE [Concomitant]
     Active Substance: PROCHLORPERAZINE
  11. OMEPRAZOLE [Concomitant]
     Active Substance: OMEPRAZOLE
  12. XGEVA [Concomitant]
     Active Substance: DENOSUMAB
  13. ROXICODONE [Concomitant]
     Active Substance: OXYCODONE HYDROCHLORIDE
  14. MIRALAX [Concomitant]
     Active Substance: POLYETHYLENE GLYCOL 3350
  15. ALLEGRA [Concomitant]
     Active Substance: FEXOFENADINE HYDROCHLORIDE
  16. DICYCLOMINE [Concomitant]
     Active Substance: DICYCLOMINE HYDROCHLORIDE
  17. LEVOTHYROXINE [Concomitant]
     Active Substance: LEVOTHYROXINE
  18. FENTANYL [Concomitant]
     Active Substance: FENTANYL
     Dosage: 250 MCG/HR
  19. MAGNESIUM [Concomitant]
     Active Substance: MAGNESIUM
  20. GABAPENTIN [Concomitant]
     Active Substance: GABAPENTIN
  21. FUROSEMIDE [Concomitant]
     Active Substance: FUROSEMIDE
  22. AMLODIPINE [Concomitant]
     Active Substance: AMLODIPINE BESYLATE
  23. ELIQUIS [Concomitant]
     Active Substance: APIXABAN
  24. CALCIUM CARBONATE\VITAMIN D [Concomitant]
     Active Substance: CALCIUM CARBONATE\VITAMIN D
  25. ONDANSETRON [Concomitant]
     Active Substance: ONDANSETRON

REACTIONS (9)
  - Adverse event [Unknown]
  - Transfusion [Unknown]
  - Oxygen saturation decreased [Recovered/Resolved]
  - Fluid retention [Unknown]
  - Fatigue [Not Recovered/Not Resolved]
  - Feeling abnormal [Not Recovered/Not Resolved]
  - Vision blurred [Unknown]
  - Nausea [Unknown]
  - Anaemia [Unknown]

NARRATIVE: CASE EVENT DATE: 20220101
